FAERS Safety Report 10154043 (Version 2)
Quarter: 2014Q2

REPORT INFORMATION
  Report Type: Spontaneous
  Country: US (occurrence: None)
  Receive Date: 20140502
  Receipt Date: 20140509
  Transmission Date: 20141212
  Serious: Yes (Death)
  Sender: FDA-Public Use
  Company Number: UTC-047750

PATIENT
  Age: 57 Year
  Sex: Male
  Weight: 113.3 kg

DRUGS (2)
  1. TYVASO [Suspect]
     Indication: PULMONARY ARTERIAL HYPERTENSION
     Route: 055
     Dates: start: 20120607
  2. LETAIRIS (AMBRISENTAN) [Concomitant]

REACTIONS (4)
  - Death [None]
  - Chronic obstructive pulmonary disease [None]
  - Terminal state [None]
  - Respiratory failure [None]
